FAERS Safety Report 10102334 (Version 1)
Quarter: 2014Q2

REPORT INFORMATION
  Report Type: Spontaneous
  Country: US (occurrence: US)
  Receive Date: 20140424
  Receipt Date: 20140424
  Transmission Date: 20141212
  Serious: No
  Sender: FDA-Public Use
  Company Number: US-009507513-1402USA013738

PATIENT
  Sex: Male

DRUGS (2)
  1. CORICIDIN HBP NIGHT [Suspect]
     Indication: NASOPHARYNGITIS
     Dosage: UNK, UNKNOWN
     Route: 048
     Dates: start: 20140222
  2. CORICIDIN HBP DAY [Suspect]
     Indication: NASOPHARYNGITIS
     Dosage: UNK, UNKNOWN
     Route: 048
     Dates: start: 20140222

REACTIONS (2)
  - Dizziness [Unknown]
  - Fall [Unknown]
